FAERS Safety Report 4836108-6 (Version None)
Quarter: 2005Q4

REPORT INFORMATION
  Report Type: 
  Country: None (occurrence: None)
  Receive Date: 20051118
  Receipt Date: 20051110
  Transmission Date: 20060501
  Serious: Yes (Death, Hospitalization, Disabling)
  Sender: FDA-Public Use
  Company Number: 2005JP001075

PATIENT
  Age: 60 Year
  Sex: Female

DRUGS (14)
  1. PROGRAF [Suspect]
     Indication: RENAL TRANSPLANT
     Dosage: SEE IMAGE
     Route: 048
     Dates: end: 20040831
  2. PROGRAF [Suspect]
     Indication: RENAL TRANSPLANT
     Dosage: SEE IMAGE
     Route: 048
     Dates: start: 20040901, end: 20040901
  3. PROGRAF [Suspect]
     Indication: RENAL TRANSPLANT
     Dosage: SEE IMAGE
     Route: 048
     Dates: start: 20040902, end: 20040914
  4. PROGRAF [Suspect]
     Indication: RENAL TRANSPLANT
     Dosage: SEE IMAGE
     Route: 048
     Dates: start: 20040915, end: 20040916
  5. PROGRAF [Suspect]
     Indication: RENAL TRANSPLANT
     Dosage: SEE IMAGE
     Route: 048
     Dates: start: 20040917, end: 20040921
  6. PROGRAF [Suspect]
     Indication: RENAL TRANSPLANT
     Dosage: SEE IMAGE
     Route: 048
     Dates: start: 20040922, end: 20040923
  7. PROGRAF [Suspect]
     Indication: RENAL TRANSPLANT
     Dosage: SEE IMAGE
     Route: 048
     Dates: start: 20040924, end: 20041008
  8. PROGRAF [Suspect]
     Indication: RENAL TRANSPLANT
     Dosage: SEE IMAGE
     Route: 048
     Dates: start: 20041009, end: 20041013
  9. PROGRAF [Suspect]
     Indication: RENAL TRANSPLANT
     Dosage: SEE IMAGE
     Route: 048
     Dates: start: 20041014, end: 20041120
  10. MEDROL [Suspect]
     Indication: RENAL TRANSPLANT
     Dosage: 6.00 MG, UID/QD, ORAL
     Route: 048
     Dates: end: 20041120
  11. CELLCEPT [Concomitant]
  12. PREDNISONE [Concomitant]
  13. BREDININ (MIZORIBINE) TABLET [Concomitant]
  14. URSO (URSODEOXYCHOLIC ACID) TABLET [Concomitant]

REACTIONS (11)
  - ANAEMIA [None]
  - CEREBELLAR ATAXIA [None]
  - DIABETES MELLITUS [None]
  - DIZZINESS [None]
  - GASTROINTESTINAL HAEMORRHAGE [None]
  - GLOSSOPHARYNGEAL NERVE PARALYSIS [None]
  - HEPATIC FAILURE [None]
  - HEPATITIS B [None]
  - REVERSIBLE POSTERIOR LEUKOENCEPHALOPATHY SYNDROME [None]
  - VAGUS NERVE PARALYSIS [None]
  - XITH NERVE PARALYSIS [None]
